FAERS Safety Report 23289085 (Version 2)
Quarter: 2024Q1

REPORT INFORMATION
  Report Type: Spontaneous
  Country: US (occurrence: US)
  Receive Date: 20231212
  Receipt Date: 20240103
  Transmission Date: 20240410
  Serious: Yes (Death, Life-Threatening, Hospitalization)
  Sender: FDA-Public Use
  Company Number: US-FreseniusKabi-FK202319987

PATIENT
  Age: 69 Year
  Sex: Female
  Weight: 64 kg

DRUGS (60)
  1. LEUCOVORIN CALCIUM [Suspect]
     Active Substance: LEUCOVORIN CALCIUM
     Indication: Colorectal cancer
     Dosage: 400 MG SINGLE DOSE
     Route: 042
     Dates: start: 20220831, end: 20220831
  2. LEUCOVORIN CALCIUM [Suspect]
     Active Substance: LEUCOVORIN CALCIUM
     Dosage: 99 MG SINGLE DOSE
     Route: 042
     Dates: start: 20220929, end: 20220929
  3. LEUCOVORIN CALCIUM [Suspect]
     Active Substance: LEUCOVORIN CALCIUM
     Dosage: 99 MG SINGLE DOSE
     Route: 042
     Dates: start: 20221019, end: 20221019
  4. LEUCOVORIN CALCIUM [Suspect]
     Active Substance: LEUCOVORIN CALCIUM
     Dosage: 99 MG SINGLE DOSE
     Route: 042
     Dates: start: 20221109, end: 20221109
  5. ZIMBERELIMAB [Suspect]
     Active Substance: ZIMBERELIMAB
     Indication: Colorectal cancer
     Dosage: 480 MG SINGLE DOSE
     Route: 042
     Dates: start: 20220831, end: 20220831
  6. ZIMBERELIMAB [Suspect]
     Active Substance: ZIMBERELIMAB
     Dosage: 480 MG SINGLE DOSE
     Route: 042
     Dates: start: 20221019, end: 20221019
  7. ZIMBERELIMAB [Suspect]
     Active Substance: ZIMBERELIMAB
     Dosage: 480 MG SINGLE DOSE
     Route: 042
     Dates: start: 20221130, end: 20221130
  8. ZIMBERELIMAB [Suspect]
     Active Substance: ZIMBERELIMAB
     Dosage: 480 MG SINGLE DOSE
     Route: 042
     Dates: start: 20221228, end: 20221228
  9. ETRUMADENANT [Suspect]
     Active Substance: ETRUMADENANT
     Indication: Colorectal cancer
     Dosage: 150 MG SINGLE DOSE?CAPSULE
     Route: 048
     Dates: start: 20220831, end: 20220919
  10. ETRUMADENANT [Suspect]
     Active Substance: ETRUMADENANT
     Dosage: 150 MG SINGLE DOSE?CAPSULE
     Route: 048
     Dates: start: 20221019, end: 20221123
  11. ETRUMADENANT [Suspect]
     Active Substance: ETRUMADENANT
     Dosage: 150 MG SINGLE DOSE?CAPSULE
     Route: 048
     Dates: start: 20221130, end: 20221227
  12. ETRUMADENANT [Suspect]
     Active Substance: ETRUMADENANT
     Dosage: 150 MG SINGLE DOSE?CAPSULE
     Route: 048
     Dates: start: 20230111, end: 20230124
  13. OXALIPLATIN [Suspect]
     Active Substance: OXALIPLATIN
     Indication: Colorectal cancer
     Dosage: 141 MG SINGLE DOSE
     Route: 042
     Dates: start: 20220831, end: 20220831
  14. OXALIPLATIN [Suspect]
     Active Substance: OXALIPLATIN
     Dosage: 112 MG SINGLE DOSE
     Route: 042
     Dates: start: 20220929, end: 20220929
  15. OXALIPLATIN [Suspect]
     Active Substance: OXALIPLATIN
     Dosage: 85 MG SINGLE DOSE
     Route: 042
     Dates: start: 20221019, end: 20221019
  16. OXALIPLATIN [Suspect]
     Active Substance: OXALIPLATIN
     Dosage: 57.5 MG SINGLE DOSE
     Route: 042
     Dates: start: 20221109, end: 20221109
  17. OXALIPLATIN [Suspect]
     Active Substance: OXALIPLATIN
     Dosage: 57.5 MG SINGLE DOSE
     Route: 042
     Dates: start: 20221130, end: 20221130
  18. OXALIPLATIN [Suspect]
     Active Substance: OXALIPLATIN
     Dosage: 57.5 MG SINGLE DOSE
     Route: 042
     Dates: start: 20221214, end: 20221214
  19. OXALIPLATIN [Suspect]
     Active Substance: OXALIPLATIN
     Dosage: 57.5 MG SINGLE DOSE
     Route: 042
     Dates: start: 20221228, end: 20221228
  20. OXALIPLATIN [Suspect]
     Active Substance: OXALIPLATIN
     Dosage: 57.5 MG SINGLE DOSE
     Route: 042
     Dates: start: 20230111, end: 20230111
  21. FLUOROURACIL [Suspect]
     Active Substance: FLUOROURACIL
     Indication: Colorectal cancer
     Dosage: 3984 MG SINGLE DOSE
     Route: 042
     Dates: start: 20220831, end: 20220831
  22. FLUOROURACIL [Suspect]
     Active Substance: FLUOROURACIL
     Dosage: 531 MG SINGLE DOSE
     Route: 042
     Dates: start: 20220929, end: 20220929
  23. FLUOROURACIL [Suspect]
     Active Substance: FLUOROURACIL
     Dosage: 3187 MG SINGLE DOSE
     Route: 042
     Dates: start: 20220929, end: 20220929
  24. FLUOROURACIL [Suspect]
     Active Substance: FLUOROURACIL
     Dosage: 400 MG SINGLE DOSE
     Route: 042
     Dates: start: 20221019, end: 20221019
  25. FLUOROURACIL [Suspect]
     Active Substance: FLUOROURACIL
     Dosage: 2400 MG SINGLE DOSE
     Route: 042
     Dates: start: 20221019, end: 20221019
  26. FLUOROURACIL [Suspect]
     Active Substance: FLUOROURACIL
     Dosage: 265 MG SINGLE DOSE
     Route: 042
     Dates: start: 20221109, end: 20221109
  27. FLUOROURACIL [Suspect]
     Active Substance: FLUOROURACIL
     Dosage: 1600 MG SINGLE DOSE
     Route: 042
     Dates: start: 20221109, end: 20221109
  28. FLUOROURACIL [Suspect]
     Active Substance: FLUOROURACIL
     Dosage: 1600 MG SINGLE DOSE
     Route: 042
     Dates: start: 20221130, end: 20221130
  29. FLUOROURACIL [Suspect]
     Active Substance: FLUOROURACIL
     Dosage: 1600 MG SINGLE DOSE
     Route: 042
     Dates: start: 20221214, end: 20221214
  30. FLUOROURACIL [Suspect]
     Active Substance: FLUOROURACIL
     Dosage: 1600 MG SINGLE DOSE
     Route: 042
     Dates: start: 20221228, end: 20221228
  31. FLUOROURACIL [Suspect]
     Active Substance: FLUOROURACIL
     Dosage: 1600 MG SINGLE DOSE
     Route: 042
     Dates: start: 20220111, end: 20220111
  32. FLUOROURACIL [Suspect]
     Active Substance: FLUOROURACIL
     Dosage: 664 MG SINGLE DOSE
     Route: 042
     Dates: start: 20220831, end: 20220831
  33. BEVACIZUMAB [Suspect]
     Active Substance: BEVACIZUMAB
     Indication: Colorectal cancer
     Dosage: 317 MG SINGLE DOSE
     Dates: start: 20220929, end: 20220929
  34. BEVACIZUMAB [Suspect]
     Active Substance: BEVACIZUMAB
     Dosage: 300 MG SINGLE DOSE
     Dates: start: 20221019, end: 20221019
  35. BEVACIZUMAB [Suspect]
     Active Substance: BEVACIZUMAB
     Dosage: 300 MG SINGLE DOSE
     Dates: start: 20221109, end: 20221109
  36. BEVACIZUMAB [Suspect]
     Active Substance: BEVACIZUMAB
     Dosage: 300 MG SINGLE DOSE
     Dates: start: 20221130, end: 20221130
  37. BEVACIZUMAB [Suspect]
     Active Substance: BEVACIZUMAB
     Dosage: 300 MG SINGLE DOSE
     Dates: start: 20221214, end: 20221214
  38. BEVACIZUMAB [Suspect]
     Active Substance: BEVACIZUMAB
     Dosage: 300 MG SINGLE DOSE
     Dates: start: 20221228, end: 20221228
  39. BEVACIZUMAB [Suspect]
     Active Substance: BEVACIZUMAB
     Dosage: 300 MG SINGLE DOSE
     Dates: start: 20230111, end: 20230111
  40. BEVACIZUMAB [Suspect]
     Active Substance: BEVACIZUMAB
     Dosage: 317 MG SINGLE DOSE
     Dates: start: 20220831, end: 20220831
  41. IBUPROFEN [Concomitant]
     Active Substance: IBUPROFEN
     Indication: Product used for unknown indication
  42. SYNTHROID [Concomitant]
     Active Substance: LEVOTHYROXINE SODIUM
     Indication: Product used for unknown indication
     Dates: start: 20170913, end: 20230111
  43. GABAPENTIN [Concomitant]
     Active Substance: GABAPENTIN
     Indication: Product used for unknown indication
     Dates: start: 20171101
  44. LORATADINE HYDROCHLORIDE [Concomitant]
     Indication: Product used for unknown indication
     Dates: start: 20211114
  45. PERCOCET  [OXYCODONE HYDROCHLORIDE;OXYCODONE TEREPHTHALATE;PARACETAMOL [Concomitant]
     Indication: Product used for unknown indication
     Dates: start: 20220311
  46. PROTONIX [Concomitant]
     Active Substance: PANTOPRAZOLE SODIUM
     Indication: Product used for unknown indication
     Dates: start: 20220311
  47. LOPERAMIDE DOC (LOPERAMIDE HYDROCHLORIDE) [Concomitant]
     Indication: Product used for unknown indication
     Dates: start: 20220315
  48. COLESTID (COLESTIPOL HYDROCHLORIDE) [Concomitant]
     Indication: Product used for unknown indication
     Dates: start: 20220604, end: 20221111
  49. POTASSIUM CHLORIDE 0.15% + GLUCOSE 5% [Concomitant]
     Indication: Product used for unknown indication
     Dates: start: 20220621
  50. DECADRON A (DEXAMETHASONE ACETATE) [Concomitant]
     Indication: Product used for unknown indication
     Dates: start: 20220727
  51. ZYPREXA [Concomitant]
     Active Substance: OLANZAPINE
     Indication: Product used for unknown indication
     Dates: start: 20220727
  52. ADDERALL (AMFETAMINE ASPARTATE, AMFETAMINE SULFATE, DEXAMFETAMINE SACC [Concomitant]
     Indication: Product used for unknown indication
     Dates: start: 20220831
  53. LOMOTIL [ATROPINE SULFATE;DIPHENOXYLATE HYDROCHLORIDE] [Concomitant]
     Indication: Product used for unknown indication
     Dates: start: 20220315
  54. LOPERAMIDE HYDROCHLORIDE [Concomitant]
     Active Substance: LOPERAMIDE HYDROCHLORIDE
     Indication: Product used for unknown indication
     Dates: start: 20220901
  55. COMPAZINE [Concomitant]
     Active Substance: PROCHLORPERAZINE MALEATE
     Indication: Product used for unknown indication
     Dates: start: 20220901, end: 20220901
  56. MS CONTIN [Concomitant]
     Active Substance: MORPHINE SULFATE
     Indication: Product used for unknown indication
     Dates: start: 20220726
  57. AMCAL PROCHLORPERAZINE (PROCHLORPERAZINE MALEATE) [Concomitant]
     Indication: Product used for unknown indication
     Dates: start: 20220908
  58. ATIVAN [Concomitant]
     Active Substance: LORAZEPAM
     Indication: Product used for unknown indication
     Dates: start: 20220311
  59. COLESTIPOL [Concomitant]
     Active Substance: COLESTIPOL
     Indication: Product used for unknown indication
     Dates: start: 20220604, end: 20221111
  60. IMODIUM [Concomitant]
     Active Substance: LOPERAMIDE HYDROCHLORIDE
     Indication: Product used for unknown indication
     Dates: start: 20220315

REACTIONS (8)
  - Disease progression [Fatal]
  - Colon cancer metastatic [Fatal]
  - Febrile neutropenia [Recovered/Resolved]
  - Pneumonitis [Recovered/Resolved]
  - Hyponatraemia [Unknown]
  - Dehydration [Unknown]
  - Lactic acidosis [Unknown]
  - Muscular weakness [Unknown]

NARRATIVE: CASE EVENT DATE: 20220930
